FAERS Safety Report 8775479 (Version 1)
Quarter: 2012Q4

REPORT INFORMATION
  Report Type: 
  Country: US (occurrence: US)
  Receive Date: 20120910
  Receipt Date: 20120910
  Transmission Date: 20130627
  Serious: Yes (Other)
  Sender: FDA-Public Use
  Company Number: US-ASTRAZENECA-2012SE65803

PATIENT
  Age: 66 Year
  Sex: Female

DRUGS (1)
  1. SEROQUEL XR [Suspect]
     Indication: BIPOLAR DISORDER
     Route: 048
     Dates: start: 201205

REACTIONS (8)
  - Cataract [Unknown]
  - Suicidal ideation [Unknown]
  - Central obesity [Unknown]
  - Body dysmorphic disorder [Unknown]
  - Eating disorder [Unknown]
  - Adverse event [Unknown]
  - Weight increased [Unknown]
  - Hyperlipidaemia [Unknown]
